FAERS Safety Report 6539245-3 (Version None)
Quarter: 2010Q1

REPORT INFORMATION
  Report Type: 
  Country: None (occurrence: None)
  Receive Date: 20100112
  Receipt Date: 20091230
  Transmission Date: 20100710
  Serious: Yes (Other)
  Sender: FDA-Public Use
  Company Number: 2009AP005080

PATIENT
  Age: 68 Year
  Sex: Male

DRUGS (6)
  1. TERBINAFINE HYDROCHLORIDE [Suspect]
     Indication: ONYCHOMYCOSIS
     Dosage: 250 MG; TAB; PO; QD
     Route: 048
     Dates: start: 20091014
  2. ATENOLOL [Concomitant]
  3. HYDROCHLOROTHIAZIDE [Concomitant]
  4. OXYBUTYNIN CHLORIDE [Concomitant]
  5. TERAZOSIN HYDROCHLORIDE [Concomitant]
  6. FINASTERIDE [Concomitant]

REACTIONS (2)
  - CHROMATURIA [None]
  - RENAL FAILURE [None]
